FAERS Safety Report 5415919-2 (Version None)
Quarter: 2007Q3

REPORT INFORMATION
  Report Type: 
  Country: None (occurrence: None)
  Receive Date: 20070815
  Receipt Date: 20070803
  Transmission Date: 20080115
  Serious: Yes (Hospitalization)
  Sender: FDA-Public Use
  Company Number: US-SHR-US-2006-012656

PATIENT
  Age: 32 Year
  Sex: Female
  Weight: 60.771 kg

DRUGS (6)
  1. BETASERON [Suspect]
     Indication: RELAPSING-REMITTING MULTIPLE SCLEROSIS
     Dosage: 8 MIU, EVERY 2D
     Route: 058
     Dates: start: 20050504, end: 20060101
  2. BETASERON [Suspect]
     Dosage: 8 MIU, EVERY 2D
     Route: 058
     Dates: start: 20060322
  3. TYLENOL (CAPLET) [Concomitant]
     Dosage: 1 G, GENERALLY 2 H PRIOR TO INJ.
  4. CALCIUM CHLORIDE [Concomitant]
  5. ZINC [Concomitant]
  6. VITAMIN PREPARATION COMPOUND [Concomitant]

REACTIONS (12)
  - ABORTION SPONTANEOUS [None]
  - COGNITIVE DISORDER [None]
  - COMA [None]
  - CONFUSIONAL STATE [None]
  - DRUG EXPOSURE DURING PREGNANCY [None]
  - DYSARTHRIA [None]
  - ECLAMPSIA [None]
  - FATIGUE [None]
  - GAIT DISTURBANCE [None]
  - GRAND MAL CONVULSION [None]
  - PYREXIA [None]
  - WEIGHT DECREASED [None]
